FAERS Safety Report 7225068-9 (Version None)
Quarter: 2011Q1

REPORT INFORMATION
  Report Type: 
  Country: None (occurrence: None)
  Receive Date: 20110113
  Receipt Date: 20110105
  Transmission Date: 20110831
  Serious: Yes (Other)
  Sender: FDA-Public Use
  Company Number: US-US-EMD SERONO, INC.-7034580

PATIENT
  Sex: Female

DRUGS (2)
  1. REBIF [Suspect]
     Indication: MULTIPLE SCLEROSIS
     Route: 058
     Dates: start: 20091228
  2. DIFLUCAN [Suspect]
     Indication: INFECTION

REACTIONS (3)
  - SOFT TISSUE DISORDER [None]
  - ANAPHYLACTIC REACTION [None]
  - LOCALISED INFECTION [None]
